FAERS Safety Report 9473136 (Version 1)
Quarter: 2013Q3

REPORT INFORMATION
  Report Type: Spontaneous
  Country: US (occurrence: US)
  Receive Date: 20130823
  Receipt Date: 20130823
  Transmission Date: 20140515
  Serious: No
  Sender: FDA-Public Use
  Company Number: US-BRISTOL-MYERS SQUIBB COMPANY-17474453

PATIENT
  Age: 74 Year
  Sex: Male
  Weight: 81.63 kg

DRUGS (1)
  1. SPRYCEL [Suspect]
     Indication: CHRONIC MYELOID LEUKAEMIA
     Dosage: 1 DF: 14 PILLS.?LAST DOSE THIS PAST SATURDAY.

REACTIONS (3)
  - Cough [Unknown]
  - Nasopharyngitis [Unknown]
  - Weight decreased [Unknown]
